FAERS Safety Report 5341033-0 (Version None)
Quarter: 2007Q2

REPORT INFORMATION
  Report Type: 
  Country: None (occurrence: None)
  Receive Date: 20070405
  Receipt Date: 20070126
  Transmission Date: 20071010
  Serious: No
  Sender: FDA-Public Use
  Company Number: US200701005322

PATIENT
  Age: 42 Year
  Sex: Female

DRUGS (7)
  1. CYMBALTA [Suspect]
     Indication: NEURALGIA
     Dosage: 60 MG,
     Dates: start: 20060401
  2. NEURONTIN [Concomitant]
  3. ZANAFLEX [Concomitant]
  4. ESTRACE [Concomitant]
  5. ZYRTEC-D 12 HOUR [Concomitant]
  6. IRON (IRON) [Concomitant]
  7. MULTIVITAMIN [Concomitant]

REACTIONS (3)
  - DRUG INEFFECTIVE [None]
  - DRUG WITHDRAWAL SYNDROME [None]
  - TINNITUS [None]
